FAERS Safety Report 18342646 (Version 2)
Quarter: 2020Q4

REPORT INFORMATION
  Report Type: Report from Study
  Country: EG (occurrence: EG)
  Receive Date: 20201005
  Receipt Date: 20201009
  Transmission Date: 20210113
  Serious: Yes (Other)
  Sender: FDA-Public Use
  Company Number: NVSC2020EG266634

PATIENT
  Age: 14 Year
  Sex: Male
  Weight: 38 kg

DRUGS (5)
  1. OSSOFORTIN [Concomitant]
     Indication: PRODUCT USED FOR UNKNOWN INDICATION
     Dosage: UNK, (1 TAB/2DAYS)
     Route: 065
     Dates: start: 20200922
  2. OMNITROPE [Suspect]
     Active Substance: SOMATROPIN
     Indication: GROWTH HORMONE DEFICIENCY
     Dosage: 1.3 G, QD
     Route: 058
     Dates: start: 20200922
  3. TRIACTIN [Concomitant]
     Indication: PRODUCT USED FOR UNKNOWN INDICATION
     Dosage: (1/2 TAB/3TIMES/DAY) (STARTED FROM 1 MONTH)
     Route: 065
  4. KEROVIT [Concomitant]
     Indication: PRODUCT USED FOR UNKNOWN INDICATION
     Dosage: UNK, (1TAB/2DAYS)
     Route: 065
     Dates: start: 20200922
  5. DIGESTIN [Concomitant]
     Indication: PRODUCT USED FOR UNKNOWN INDICATION
     Dosage: (1/2 TAB/3TIMES/DAY) (STARTED FROM 1 MONTH)
     Route: 065

REACTIONS (2)
  - Device issue [Not Recovered/Not Resolved]
  - Underdose [Not Recovered/Not Resolved]

NARRATIVE: CASE EVENT DATE: 20200922
